FAERS Safety Report 6338739-3 (Version None)
Quarter: 2009Q3

REPORT INFORMATION
  Report Type: 
  Country: None (occurrence: None)
  Receive Date: 20090831
  Receipt Date: 20080908
  Transmission Date: 20100115
  Serious: Yes (Other)
  Sender: FDA-Public Use
  Company Number: 173118USA

PATIENT
  Sex: Male

DRUGS (4)
  1. LISINOPRIL AND HYDROCHLOROTHIAZIDE [Suspect]
     Indication: BLOOD PRESSURE INCREASED
     Dosage: 20 MG (20 MG, 1 IN 1 D), ORAL; 12.5 MG (12.5 MG, 1 IN 1 D), ORAL
     Route: 048
     Dates: start: 20080320, end: 20080409
  2. LISINOPRIL AND HYDROCHLOROTHIAZIDE [Suspect]
     Indication: BLOOD PRESSURE INCREASED
     Dosage: 20 MG (20 MG, 1 IN 1 D), ORAL; 12.5 MG (12.5 MG, 1 IN 1 D), ORAL
     Route: 048
     Dates: start: 20080320, end: 20080409
  3. ALPRAZOLAM [Concomitant]
  4. BLOOD PRESSURE MEDICATION (NOS) [Concomitant]

REACTIONS (1)
  - HYPERKALAEMIA [None]
